FAERS Safety Report 7931360-2 (Version None)
Quarter: 2011Q4

REPORT INFORMATION
  Report Type: 
  Country: None (occurrence: None)
  Receive Date: 20111121
  Receipt Date: 20110823
  Transmission Date: 20120403
  Serious: No
  Sender: FDA-Public Use
  Company Number: US-BAYER-2011-080168

PATIENT
  Age: 61 Year
  Sex: Female
  Weight: 77 kg

DRUGS (3)
  1. ALEVE (CAPLET) [Suspect]
     Indication: BACK PAIN
     Dosage: 2 TAB
     Route: 048
     Dates: start: 20110822, end: 20110822
  2. INSULIN [Concomitant]
  3. THYROID MEDICINE [Concomitant]

REACTIONS (1)
  - BACK PAIN [None]
